FAERS Safety Report 24259210 (Version 1)
Quarter: 2024Q3

REPORT INFORMATION
  Report Type: Spontaneous
  Country: US (occurrence: US)
  Receive Date: 20240828
  Receipt Date: 20240828
  Transmission Date: 20241017
  Serious: Yes (Hospitalization, Other)
  Sender: PURDUE
  Company Number: US-PURDUE PHARMA-USA-2024-0311606

PATIENT
  Sex: Female

DRUGS (4)
  1. OXYCONTIN [Suspect]
     Active Substance: OXYCODONE HYDROCHLORIDE
     Indication: Product used for unknown indication
     Dosage: UNK
     Route: 065
     Dates: end: 20240614
  2. OFEV [Suspect]
     Active Substance: NINTEDANIB
     Indication: Idiopathic pulmonary fibrosis
     Dosage: 200 MILLIGRAM
     Route: 048
     Dates: start: 20210329, end: 20240614
  3. OFEV [Suspect]
     Active Substance: NINTEDANIB
     Dosage: 200 MILLIGRAM
     Route: 048
     Dates: start: 20210329, end: 20240614
  4. OFEV [Suspect]
     Active Substance: NINTEDANIB
     Dosage: 200 MILLIGRAM
     Route: 048
     Dates: start: 20210329, end: 20240614

REACTIONS (9)
  - Rib fracture [Unknown]
  - Clavicle fracture [Unknown]
  - Spinal fracture [Unknown]
  - Road traffic accident [Unknown]
  - Herpes zoster [Unknown]
  - Constipation [Unknown]
  - Fatigue [Unknown]
  - Oedema peripheral [Not Recovered/Not Resolved]
  - Diarrhoea [Unknown]

NARRATIVE: CASE EVENT DATE: 20200101
